FAERS Safety Report 6145818-2 (Version None)
Quarter: 2009Q2

REPORT INFORMATION
  Report Type: 
  Country: None (occurrence: None)
  Receive Date: 20090406
  Receipt Date: 20090406
  Transmission Date: 20091009
  Serious: No
  Sender: FDA-Public Use
  Company Number: None

PATIENT
  Age: 72 Year
  Sex: Male
  Weight: 74.8435 kg

DRUGS (1)
  1. AMANTADINE HCL [Suspect]
     Indication: INFLUENZA
     Dosage: 100 MG 2 X/DAY BY MOUTH
     Route: 048
     Dates: start: 20090311

REACTIONS (3)
  - DYSURIA [None]
  - HEADACHE [None]
  - INSOMNIA [None]
